FAERS Safety Report 16220122 (Version 3)
Quarter: 2019Q2

REPORT INFORMATION
  Report Type: Spontaneous
  Country: US (occurrence: US)
  Receive Date: 20190420
  Receipt Date: 20190613
  Transmission Date: 20190711
  Serious: No
  Sender: FDA-Public Use
  Company Number: US-009507513-1904USA008560

PATIENT
  Age: 19 Year
  Sex: Female
  Weight: 73 kg

DRUGS (3)
  1. NEXPLANON [Suspect]
     Active Substance: ETONOGESTREL
     Indication: CONTRACEPTION
     Dosage: 1 DOSAGE FORM
     Route: 058
     Dates: start: 20190321, end: 20190321
  2. NEXPLANON [Suspect]
     Active Substance: ETONOGESTREL
     Dosage: 1 DOSAGE FORM
     Route: 059
     Dates: start: 20190416, end: 20190416
  3. NEXPLANON [Suspect]
     Active Substance: ETONOGESTREL
     Dosage: 1 UNK
     Route: 059

REACTIONS (7)
  - Device difficult to use [Recovered/Resolved]
  - Device expulsion [Recovered/Resolved]
  - Device kink [Recovered/Resolved]
  - Complication of device insertion [Recovered/Resolved]
  - Device deployment issue [Recovered/Resolved]
  - Device expulsion [Recovered/Resolved]
  - No adverse event [Unknown]

NARRATIVE: CASE EVENT DATE: 20190321
